FAERS Safety Report 8785477 (Version 2)
Quarter: 2012Q4

REPORT INFORMATION
  Report Type: Report from Study
  Country: JP (occurrence: JP)
  Receive Date: 20120914
  Receipt Date: 20121030
  Transmission Date: 20130627
  Serious: Yes (Hospitalization, Other)
  Sender: FDA-Public Use
  Company Number: JP-BAYER-2012-061582

PATIENT
  Age: 77 Year
  Sex: Male

DRUGS (11)
  1. ACARBOSE [Suspect]
     Indication: DIABETES MELLITUS
     Dosage: 50 mg, TID
     Route: 048
     Dates: start: 20110405, end: 20110710
  2. ROHYPNOL [Concomitant]
     Indication: INSOMNIA
     Dosage: Daily dose 1 DF
     Route: 048
  3. MYSLEE [Concomitant]
     Indication: INSOMNIA
     Dosage: Daily dose 1 DF
     Route: 048
  4. ARTIST [Concomitant]
     Indication: HYPERTENSION
     Dosage: Daily dose 1 DF
     Route: 048
  5. LASIX [Concomitant]
     Indication: HYPERTENSION
     Dosage: Daily dose 2 DF
     Route: 048
  6. LASIX [Concomitant]
     Indication: HYPERTENSION
     Dosage: 40 mg, QD
     Route: 048
  7. ZYLORIC [Concomitant]
     Indication: HYPERURICAEMIA
     Dosage: Daily dose 2 DF
     Route: 048
  8. TANATRIL [Concomitant]
     Indication: HYPERTENSION
     Dosage: Daily dose 2 DF
     Route: 048
  9. ADALAT CR [Concomitant]
     Indication: HYPERTENSION
     Dosage: Daily dose 1 DF
     Route: 048
  10. ALDACTONE A [Concomitant]
     Indication: HYPERTENSION
     Dosage: Daily dose 1 DF
     Route: 048
  11. WARFARIN [Concomitant]
     Indication: ATRIAL FIBRILLATION
     Dosage: Daily dose 1.5 DF
     Route: 048

REACTIONS (2)
  - Cerebellar infarction [Unknown]
  - Cardiac failure [Recovering/Resolving]
